FAERS Safety Report 25606615 (Version 1)
Quarter: 2025Q3

REPORT INFORMATION
  Report Type: Spontaneous
  Country: US (occurrence: US)
  Receive Date: 20250725
  Receipt Date: 20250725
  Transmission Date: 20251021
  Serious: Yes (Hospitalization, Other)
  Sender: AMGEN
  Company Number: US-AMGEN-USASP2025141326

PATIENT
  Sex: Female

DRUGS (1)
  1. RITUXIMAB [Suspect]
     Active Substance: RITUXIMAB
     Indication: Immune thrombocytopenia
     Route: 065

REACTIONS (9)
  - Deafness neurosensory [Unknown]
  - Neurotoxicity [Unknown]
  - Glomerulosclerosis [Unknown]
  - Renal failure [Unknown]
  - Thrombocytopenia [Unknown]
  - Therapy non-responder [Unknown]
  - Oropharyngeal pain [Unknown]
  - Off label use [Unknown]
  - Hypertension [Unknown]
